FAERS Safety Report 5004879-4 (Version None)
Quarter: 2006Q1

REPORT INFORMATION
  Report Type: 
  Country: None (occurrence: None)
  Receive Date: 20060321
  Receipt Date: 20051227
  Transmission Date: 20060701
  Serious: No
  Sender: FDA-Public Use
  Company Number: YPA20060016

PATIENT
  Sex: Male

DRUGS (5)
  1. VESICARE [Suspect]
     Indication: POLLAKIURIA
     Dosage: 5 MG, UID/QD, ORAL
     Route: 048
     Dates: start: 20051226
  2. PREDNISONE TAB [Concomitant]
  3. BLOOD PRESSURE PILL [Concomitant]
  4. PRILOSEC [Concomitant]
  5. AZMACORT AEROSOL [Concomitant]

REACTIONS (2)
  - FEELING JITTERY [None]
  - THROAT TIGHTNESS [None]
